FAERS Safety Report 15493652 (Version 1)
Quarter: 2018Q4

REPORT INFORMATION
  Report Type: Spontaneous
  Country: US (occurrence: US)
  Receive Date: 20181004
  Receipt Date: 20181004
  Transmission Date: 20190205
  Serious: Yes (Hospitalization)
  Sender: FDA-Public Use
  Company Number: None

PATIENT
  Age: 71 Year
  Sex: Male

DRUGS (23)
  1. BACTRIM [Concomitant]
     Active Substance: SULFAMETHOXAZOLE\TRIMETHOPRIM
  2. MULTIVITE [Concomitant]
     Active Substance: VITAMINS
  3. TEMOZOLOMIDE 180 MG CAP [Suspect]
     Active Substance: TEMOZOLOMIDE
     Indication: NEOPLASM MALIGNANT
     Dosage: OTHER FREQUENCY:BID QD 10-14;?
     Route: 048
     Dates: start: 20151023
  4. HEPARIN LOCK [Concomitant]
  5. NOVOLIN [Concomitant]
     Active Substance: INSULIN HUMAN
  6. SODIUM CHOLOR SOL [Concomitant]
  7. ZOFRAN [Concomitant]
     Active Substance: ONDANSETRON HYDROCHLORIDE
  8. HUMALOG [Concomitant]
     Active Substance: INSULIN LISPRO
  9. NUTRITIONAL POW [Concomitant]
  10. OCUVITE [Concomitant]
     Active Substance: VITAMINS
  11. TYLENOL [Concomitant]
     Active Substance: ACETAMINOPHEN
  12. VITAMIN D3 [Concomitant]
     Active Substance: CHOLECALCIFEROL
  13. ASPIRIN. [Concomitant]
     Active Substance: ASPIRIN
  14. LEVEMIR INJ [Concomitant]
  15. VENLAFAXINE [Concomitant]
     Active Substance: VENLAFAXINE HYDROCHLORIDE
  16. VITAMIN B12 [Concomitant]
     Active Substance: CYANOCOBALAMIN
  17. IMODIUM A-D [Concomitant]
     Active Substance: LOPERAMIDE HYDROCHLORIDE
  18. LOMOTIL [Concomitant]
     Active Substance: ATROPINE SULFATE\DIPHENOXYLATE HYDROCHLORIDE
  19. OCREOTIDE [Concomitant]
  20. ONDANSETRON [Concomitant]
     Active Substance: ONDANSETRON
  21. CAPECITABINE  500 MG TAB [Suspect]
     Active Substance: CAPECITABINE
     Indication: NEOPLASM MALIGNANT
     Dosage: OTHER DOSE:1500MG AM 1000MG P;OTHER FREQUENCY:BID 14 D - 14 OFF;?
     Route: 048
     Dates: start: 20151023
  22. FLUTICASONE SPR [Concomitant]
  23. METFORMIN [Concomitant]
     Active Substance: METFORMIN HYDROCHLORIDE

REACTIONS (2)
  - Bacterial infection [None]
  - Sepsis [None]

NARRATIVE: CASE EVENT DATE: 201809
